FAERS Safety Report 16700131 (Version 2)
Quarter: 2019Q3

REPORT INFORMATION
  Report Type: Spontaneous
  Country: BR (occurrence: BR)
  Receive Date: 20190813
  Receipt Date: 20190813
  Transmission Date: 20191004
  Serious: Yes (Life-Threatening)
  Sender: FDA-Public Use
  Company Number: PHHY2019BR188033

PATIENT
  Age: 26 Year
  Sex: Male

DRUGS (5)
  1. NIFEDIPINE. [Suspect]
     Active Substance: NIFEDIPINE
     Indication: OCULAR ALBINISM
     Dosage: UNK UNK, QD
     Route: 065
  2. PREDNISOLONE. [Suspect]
     Active Substance: PREDNISOLONE
     Indication: OCULAR ALBINISM
     Dosage: UNK UNK, QD
     Route: 065
  3. TACROLIMUS. [Suspect]
     Active Substance: TACROLIMUS
     Indication: OCULAR ALBINISM
     Dosage: UNK UNK, QD
     Route: 065
  4. MYCOPHENOLATE MOFETIL. [Suspect]
     Active Substance: MYCOPHENOLATE MOFETIL
     Indication: OCULAR ALBINISM
     Dosage: UNK UNK, QD
     Route: 065
  5. METHYLDOPA. [Suspect]
     Active Substance: METHYLDOPA
     Indication: OCULAR ALBINISM
     Dosage: UNK UNK, QD
     Route: 065

REACTIONS (5)
  - Squamous cell carcinoma [Recovering/Resolving]
  - Papule [Unknown]
  - Renal disorder [Unknown]
  - Actinic keratosis [Unknown]
  - Product use in unapproved indication [Unknown]
